FAERS Safety Report 12293629 (Version 1)
Quarter: 2016Q2

REPORT INFORMATION
  Report Type: Not Available
  Country: DE (occurrence: DE)
  Receive Date: 20160421
  Receipt Date: 20160421
  Transmission Date: 20160815
  Serious: Yes (Other)
  Sender: FDA-Public Use
  Company Number: DE-ANIPHARMA-2016-DE-000002

PATIENT
  Age: 53 Year
  Sex: Female
  Weight: 75 kg

DRUGS (7)
  1. IBUPROFEN (NON-SPECIFIC) [Suspect]
     Active Substance: IBUPROFEN
     Dosage: 12 GRAMS
     Route: 048
  2. PANTOPRAZOLE [Concomitant]
     Active Substance: PANTOPRAZOLE SODIUM
  3. AMITRIPTYLINE (NON-SPECIFIC) [Suspect]
     Active Substance: AMITRIPTYLINE
     Dosage: 1750 MG
     Route: 048
  4. MIRTAZAPINE. [Concomitant]
     Active Substance: MIRTAZAPINE
  5. ALCOHOL. [Suspect]
     Active Substance: ALCOHOL
     Route: 048
  6. CITALOPRAM [Concomitant]
     Active Substance: CITALOPRAM HYDROBROMIDE
  7. UNKNOWN BETA BLOCKERS [Suspect]
     Active Substance: UNSPECIFIED INGREDIENT
     Route: 048

REACTIONS (4)
  - Haemodialysis [None]
  - Coma [Recovered/Resolved]
  - Acute kidney injury [Recovered/Resolved]
  - Suicide attempt [None]
